FAERS Safety Report 9270842 (Version 1)
Quarter: 2013Q2

REPORT INFORMATION
  Report Type: Spontaneous
  Country: DE (occurrence: DE)
  Receive Date: 20130503
  Receipt Date: 20130503
  Transmission Date: 20140414
  Serious: Yes (Other)
  Sender: FDA-Public Use
  Company Number: DE-WATSON-2013-07489

PATIENT
  Age: 73 Year
  Sex: Male

DRUGS (6)
  1. TRELSTAR (WATSON LABORATORIES) [Suspect]
     Indication: PROSTATE CANCER
     Dosage: 3.75 MG, ONCE A MONTH
     Route: 030
     Dates: start: 20121218, end: 20130212
  2. TRELSTAR (WATSON LABORATORIES) [Suspect]
     Indication: PROSTATE CANCER
     Dosage: 11.25 MG, UNK
     Route: 030
     Dates: start: 20130312
  3. SEVREDOL [Concomitant]
     Indication: PRODUCT USED FOR UNKNOWN INDICATION
     Dosage: UNKNOWN
     Route: 065
     Dates: start: 20130101
  4. IBUPROFEN [Concomitant]
     Indication: PRODUCT USED FOR UNKNOWN INDICATION
     Dosage: UNKNOWN
     Route: 065
     Dates: start: 20130312
  5. NOVALGIN                           /00169801/ [Concomitant]
     Indication: PRODUCT USED FOR UNKNOWN INDICATION
     Dosage: UNKNOWN
     Route: 065
     Dates: start: 20130326
  6. MORPHINE SULFATE [Concomitant]
     Indication: PRODUCT USED FOR UNKNOWN INDICATION
     Dosage: UNKNOWN
     Route: 065
     Dates: end: 20130326

REACTIONS (4)
  - Restlessness [Not Recovered/Not Resolved]
  - Nervousness [Not Recovered/Not Resolved]
  - Anxiety [Not Recovered/Not Resolved]
  - Inappropriate schedule of drug administration [Not Recovered/Not Resolved]
